FAERS Safety Report 20603018 (Version 1)
Quarter: 2022Q1

REPORT INFORMATION
  Report Type: Spontaneous
  Country: JP (occurrence: JP)
  Receive Date: 20220316
  Receipt Date: 20220316
  Transmission Date: 20220423
  Serious: Yes (Other)
  Sender: FDA-Public Use
  Company Number: JP-MSD-2203JPN000989J

PATIENT
  Age: 79 Year
  Sex: Female

DRUGS (4)
  1. JANUVIA [Suspect]
     Active Substance: SITAGLIPTIN PHOSPHATE
     Indication: Type 2 diabetes mellitus
     Dosage: 50 MILLIGRAM, QD
     Route: 048
  2. INSULIN GLARGINE [Concomitant]
     Active Substance: INSULIN GLARGINE
     Indication: Type 2 diabetes mellitus
     Dosage: 8 UNITS/DAY
     Route: 065
  3. GLIMEPIRIDE [Concomitant]
     Active Substance: GLIMEPIRIDE
     Indication: Type 2 diabetes mellitus
     Dosage: 4 MG/DAY
     Route: 065
  4. MIGLITOL [Concomitant]
     Active Substance: MIGLITOL
     Indication: Type 2 diabetes mellitus
     Dosage: 150 MG/DAY
     Route: 065

REACTIONS (4)
  - Altered state of consciousness [Recovering/Resolving]
  - Hemiplegia [Recovering/Resolving]
  - Reperfusion injury [Recovering/Resolving]
  - Hypoglycaemia [Recovering/Resolving]
